FAERS Safety Report 6895403-X (Version None)
Quarter: 2010Q3

REPORT INFORMATION
  Report Type: 
  Country: None (occurrence: None)
  Receive Date: 20100802
  Receipt Date: 20100721
  Transmission Date: 20110219
  Serious: Yes (Hospitalization)
  Sender: FDA-Public Use
  Company Number: BR-PFIZER INC-2010091189

PATIENT
  Age: 46 Year
  Sex: Male
  Weight: 120 kg

DRUGS (3)
  1. CHAMPIX [Suspect]
     Indication: SMOKING CESSATION THERAPY
     Dosage: UNK
     Route: 048
     Dates: start: 20100101
  2. CAPTOPRIL [Concomitant]
     Indication: HYPERTENSION
     Dosage: UNK
  3. CLORANA [Concomitant]
     Indication: HYPERTENSION
     Dosage: UNK

REACTIONS (3)
  - HYPOTENSION [None]
  - NERVOUSNESS [None]
  - SYNCOPE [None]
